FAERS Safety Report 13934732 (Version 1)
Quarter: 2017Q3

REPORT INFORMATION
  Report Type: Spontaneous
  Country: US (occurrence: US)
  Receive Date: 20170905
  Receipt Date: 20170905
  Transmission Date: 20171127
  Serious: Yes (Death, Hospitalization, Other)
  Sender: FDA-Public Use
  Company Number: US-APOTEX-2017AP017506

PATIENT
  Age: 14 Year
  Sex: Female
  Weight: 60 kg

DRUGS (24)
  1. CALCIUM GLUCONATE. [Suspect]
     Active Substance: CALCIUM GLUCONATE
     Indication: PRODUCT USED FOR UNKNOWN INDICATION
     Route: 065
  2. MORPHINE [Concomitant]
     Active Substance: MORPHINE
     Indication: PRODUCT USED FOR UNKNOWN INDICATION
     Route: 065
  3. MITOXANTRONE HCL [Suspect]
     Active Substance: MITOXANTRONE HYDROCHLORIDE
     Indication: B PRECURSOR TYPE ACUTE LEUKAEMIA
     Dosage: 10 MG/M2, OVER 30 MINUTES ON DAYS 1 AND 2
     Route: 042
     Dates: start: 20120430, end: 20120501
  4. HYDROCODONE/ACETAMINOPHEN [Concomitant]
     Active Substance: ACETAMINOPHEN\HYDROCODONE
     Indication: PRODUCT USED FOR UNKNOWN INDICATION
     Route: 065
  5. FENTANYL. [Concomitant]
     Active Substance: FENTANYL
     Indication: PRODUCT USED FOR UNKNOWN INDICATION
     Route: 065
  6. AMBISONE [Suspect]
     Active Substance: AMPHOTERICIN B
     Indication: CANDIDA INFECTION
     Dosage: UNK
     Route: 065
     Dates: start: 20120520
  7. LMX                                /00033401/ [Concomitant]
     Indication: PRODUCT USED FOR UNKNOWN INDICATION
     Dosage: 4 %, UNK
     Route: 065
  8. VANCOMYCIN [Concomitant]
     Active Substance: VANCOMYCIN
     Indication: PRODUCT USED FOR UNKNOWN INDICATION
     Route: 065
  9. ZOFRAN [Concomitant]
     Active Substance: ONDANSETRON HYDROCHLORIDE
     Indication: PRODUCT USED FOR UNKNOWN INDICATION
     Route: 065
  10. METHOTREXATE SODIUM. [Suspect]
     Active Substance: METHOTREXATE SODIUM
     Indication: B PRECURSOR TYPE ACUTE LEUKAEMIA
     Dosage: 8-15 MG AGE BASED DOSING ON DAY 1 OR UP TO 72 HOURS PRIOR TO DAY 1 AND DAY 8
     Route: 037
     Dates: start: 20120430, end: 20120507
  11. DEXAMETHASONE SODIUM PHOSPHATE. [Suspect]
     Active Substance: DEXAMETHASONE SODIUM PHOSPHATE
     Indication: B PRECURSOR TYPE ACUTE LEUKAEMIA
     Dosage: 10 MG/M2, BID
     Route: 048
     Dates: start: 20120430, end: 20120519
  12. SEPTRA [Concomitant]
     Active Substance: SULFAMETHOXAZOLE\TRIMETHOPRIM
     Indication: PRODUCT USED FOR UNKNOWN INDICATION
     Route: 065
  13. IBUPROFEN. [Concomitant]
     Active Substance: IBUPROFEN
     Indication: PRODUCT USED FOR UNKNOWN INDICATION
     Route: 065
  14. TYLENOL [Concomitant]
     Active Substance: ACETAMINOPHEN
     Indication: PRODUCT USED FOR UNKNOWN INDICATION
     Route: 065
  15. POLYETHYLENE GLYCOL [Concomitant]
     Active Substance: POLYETHYLENE GLYCOLS
     Indication: PRODUCT USED FOR UNKNOWN INDICATION
     Route: 065
  16. PHENERGAN [Concomitant]
     Active Substance: PROMETHAZINE HYDROCHLORIDE
     Indication: PRODUCT USED FOR UNKNOWN INDICATION
     Route: 065
  17. FAMOTIDINE. [Concomitant]
     Active Substance: FAMOTIDINE
     Indication: PRODUCT USED FOR UNKNOWN INDICATION
     Route: 065
  18. PIPERACILIN/TAZOBACTAM [Concomitant]
     Active Substance: PIPERACILLIN SODIUM\TAZOBACTAM SODIUM
     Indication: PRODUCT USED FOR UNKNOWN INDICATION
     Route: 065
  19. IMITREX                            /01044802/ [Concomitant]
     Indication: PRODUCT USED FOR UNKNOWN INDICATION
     Route: 065
  20. CEFEPIME [Suspect]
     Active Substance: CEFEPIME HYDROCHLORIDE
     Indication: KLEBSIELLA INFECTION
     Dosage: 10 UNK, UNK
     Route: 065
     Dates: start: 20120510
  21. TEMSIROLIMUS [Suspect]
     Active Substance: TEMSIROLIMUS
     Indication: B PRECURSOR TYPE ACUTE LEUKAEMIA
     Dosage: 7.5 MG/M2, OVER 30 MINUTES ON DAYS 1, 8 AND 15
     Route: 042
     Dates: start: 20120430, end: 20120514
  22. VINCRISTINE SULPHATE [Suspect]
     Active Substance: VINCRISTINE SULFATE
     Indication: B PRECURSOR TYPE ACUTE LEUKAEMIA
     Dosage: 1.5 MG/M2, CYCLIC (MAX 2 MG)
     Route: 042
     Dates: start: 20120430, end: 20120521
  23. PEGASPARGASE [Suspect]
     Active Substance: PEGASPARGASE
     Indication: B PRECURSOR TYPE ACUTE LEUKAEMIA
     Dosage: 2500 IU/M2 OVER 1 HOUR ON DAY 3 AND 17
     Route: 042
     Dates: start: 20120430, end: 20120516
  24. MIRALAX [Suspect]
     Active Substance: POLYETHYLENE GLYCOL 3350
     Indication: PRODUCT USED FOR UNKNOWN INDICATION
     Route: 065

REACTIONS (17)
  - Respiratory failure [Unknown]
  - Blood pressure increased [Unknown]
  - Hypotension [Unknown]
  - Enterocolitis [Unknown]
  - Acidosis [Unknown]
  - Hypocalcaemia [Unknown]
  - Stomatitis [Unknown]
  - Cardiac arrest [Unknown]
  - Sepsis [Fatal]
  - Encephalopathy [Unknown]
  - Hypercalcaemia [Unknown]
  - Respiratory distress [Recovering/Resolving]
  - Posterior reversible encephalopathy syndrome [Unknown]
  - Somnolence [Unknown]
  - Neutropenic colitis [Unknown]
  - Seizure [Recovered/Resolved]
  - Confusional state [Unknown]

NARRATIVE: CASE EVENT DATE: 20120510
